FAERS Safety Report 8443636-3 (Version None)
Quarter: 2012Q2

REPORT INFORMATION
  Report Type: 
  Country: None (occurrence: None)
  Receive Date: 20120618
  Receipt Date: 20120607
  Transmission Date: 20120825
  Serious: Yes (Other)
  Sender: FDA-Public Use
  Company Number: SE-JNJFOC-20120605230

PATIENT
  Age: 51 Year
  Sex: Female

DRUGS (2)
  1. REMICADE [Suspect]
     Indication: PSORIATIC ARTHROPATHY
     Dosage: AS NECESSARY
     Route: 042
     Dates: start: 20101207, end: 20110203
  2. UNKNOWN MEDICATION [Concomitant]
     Route: 065

REACTIONS (1)
  - ANGIOEDEMA [None]
